FAERS Safety Report 5986208-2 (Version None)
Quarter: 2008Q4

REPORT INFORMATION
  Report Type: 
  Country: None (occurrence: None)
  Receive Date: 20081209
  Receipt Date: 20081203
  Transmission Date: 20090506
  Serious: Yes (Other)
  Sender: FDA-Public Use
  Company Number: CA-BRISTOL-MYERS SQUIBB COMPANY-14282727

PATIENT
  Age: 49 Year
  Sex: Male

DRUGS (5)
  1. ORENCIA [Suspect]
     Indication: RHEUMATOID ARTHRITIS
     Dosage: THERAPY DURATION: Q4; INFUSION DATES 25JUL2008 AND 04SEP2008
     Route: 042
     Dates: start: 20080725
  2. METFORMIN HCL [Concomitant]
  3. GLICLAZIDE [Concomitant]
  4. PREDNISONE TAB [Concomitant]
  5. ADVIL LIQUI-GELS [Concomitant]

REACTIONS (2)
  - BURNS SECOND DEGREE [None]
  - OPEN WOUND [None]
